FAERS Safety Report 7096317-5 (Version None)
Quarter: 2010Q4

REPORT INFORMATION
  Report Type: 
  Country: None (occurrence: None)
  Receive Date: 20101111
  Receipt Date: 20080825
  Transmission Date: 20110411
  Serious: No
  Sender: FDA-Public Use
  Company Number: US-KINGPHARMUSA00001-K200801001

PATIENT
  Sex: Male

DRUGS (1)
  1. ALTACE [Suspect]

REACTIONS (1)
  - COUGH [None]
